FAERS Safety Report 21400619 (Version 1)
Quarter: 2022Q4

REPORT INFORMATION
  Report Type: Spontaneous
  Country: US (occurrence: US)
  Receive Date: 20221003
  Receipt Date: 20221003
  Transmission Date: 20230112
  Serious: No
  Sender: FDA-Public Use
  Company Number: US-SA-SAC20220928000858

PATIENT
  Sex: Female

DRUGS (5)
  1. CAMPATH [Suspect]
     Active Substance: ALEMTUZUMAB
     Indication: Multiple sclerosis
     Dosage: 12 MG, QD
     Route: 042
     Dates: start: 20181210, end: 20181214
  2. CAMPATH [Suspect]
     Active Substance: ALEMTUZUMAB
     Dosage: 12 MG, QD
     Route: 042
     Dates: start: 20191217, end: 20191219
  3. CAMPATH [Suspect]
     Active Substance: ALEMTUZUMAB
     Dosage: 12 MG, QD
     Route: 042
     Dates: start: 20210426, end: 20210428
  4. BETASERON [Concomitant]
     Active Substance: INTERFERON BETA-1B
     Dosage: UNK
     Dates: start: 20180822, end: 20181126
  5. COPAXONE [Concomitant]
     Active Substance: GLATIRAMER ACETATE
     Dosage: UNK
     Dates: start: 20090101, end: 20120101

REACTIONS (1)
  - Iron deficiency anaemia [Unknown]
